FAERS Safety Report 8277298-5 (Version None)
Quarter: 2012Q2

REPORT INFORMATION
  Report Type: 
  Country: None (occurrence: None)
  Receive Date: 20120412
  Receipt Date: 20120403
  Transmission Date: 20120825
  Serious: Yes (Hospitalization)
  Sender: FDA-Public Use
  Company Number: FI-GLAXOSMITHKLINE-B0746106A

PATIENT
  Sex: Male
  Weight: 93 kg

DRUGS (9)
  1. RITUXIMAB [Suspect]
     Indication: CHRONIC LYMPHOCYTIC LEUKAEMIA
     Dosage: 1050MG MONTHLY
     Route: 042
     Dates: start: 20110131
  2. AMILORIDE HCL AND HYDROCHLOROTHIAZIDE [Concomitant]
     Dosage: 25MG PER DAY
  3. SIMVASTATIN [Concomitant]
     Dosage: 20MG PER DAY
     Dates: start: 20000101
  4. CHLORAMBUCIL [Suspect]
     Indication: CHRONIC LYMPHOCYTIC LEUKAEMIA
     Dosage: 20MG PER DAY
     Route: 048
     Dates: start: 20110131
  5. METOPROLOL TARTRATE [Concomitant]
     Dosage: 95MG PER DAY
     Dates: start: 20000101
  6. ASPIRIN [Concomitant]
  7. METOPROLOL TARTRATE [Concomitant]
  8. PRIMASPAN [Concomitant]
     Dosage: 100MG PER DAY
     Dates: start: 20000101
  9. TENOX [Concomitant]
     Dosage: 20MG PER DAY
     Dates: start: 20000101

REACTIONS (2)
  - CHRONIC SINUSITIS [None]
  - SINUSITIS [None]
